FAERS Safety Report 10328664 (Version 2)
Quarter: 2016Q2

REPORT INFORMATION
  Report Type: Spontaneous
  Country: BR (occurrence: BR)
  Receive Date: 20140721
  Receipt Date: 20160601
  Transmission Date: 20160815
  Serious: Yes (Other)
  Sender: FDA-Public Use
  Company Number: BR-PFIZER INC-2014198453

PATIENT
  Age: 58 Year
  Sex: Female
  Weight: 66 kg

DRUGS (4)
  1. FRONTAL XR [Suspect]
     Active Substance: ALPRAZOLAM
     Indication: DEPRESSION
     Dosage: 1 TABLET OF 2 MG, 3X/DAY
     Route: 048
     Dates: start: 20140311
  2. STILNOX [Concomitant]
     Active Substance: ZOLPIDEM TARTRATE
     Indication: SLEEP DISORDER
     Dosage: 2 TABLET AT NIGHT
     Dates: start: 2010
  3. OMEPRAZOLE. [Concomitant]
     Active Substance: OMEPRAZOLE
     Indication: GASTRITIS
     Dosage: 1 TABLET 3X/DAY
     Dates: start: 2004
  4. FRONTAL [Suspect]
     Active Substance: ALPRAZOLAM
     Indication: DEPRESSION
     Dosage: 1 MG, 6X/DAY
     Route: 048
     Dates: start: 20120715

REACTIONS (13)
  - Foot fracture [Unknown]
  - Visual impairment [Unknown]
  - Dysstasia [Unknown]
  - Activities of daily living impaired [Unknown]
  - Soliloquy [Unknown]
  - Sleep disorder [Unknown]
  - Malaise [Unknown]
  - Gait disturbance [Unknown]
  - Pain [Unknown]
  - Tremor [Unknown]
  - Anxiety [Unknown]
  - Crying [Unknown]
  - Mental disorder [Unknown]
